FAERS Safety Report 10245196 (Version 1)
Quarter: 2014Q2

REPORT INFORMATION
  Report Type: Spontaneous
  Country: CH (occurrence: CH)
  Receive Date: 20140618
  Receipt Date: 20140618
  Transmission Date: 20141212
  Serious: Yes (Other)
  Sender: FDA-Public Use
  Company Number: PHHY2014CH071851

PATIENT
  Age: 23 Year
  Sex: Female
  Weight: 63 kg

DRUGS (3)
  1. AZATHIOPRINE [Suspect]
     Dosage: 750 MG, UNK
     Route: 048
  2. CHLORPHENIRAMINE [Suspect]
  3. DEXTROMETHORPHAN [Suspect]

REACTIONS (4)
  - Suicide attempt [Unknown]
  - Intentional overdose [Unknown]
  - Somnolence [Unknown]
  - Vomiting [Unknown]
